FAERS Safety Report 9386297 (Version 1)
Quarter: 2013Q3

REPORT INFORMATION
  Report Type: Spontaneous
  Country: US (occurrence: US)
  Receive Date: 20130708
  Receipt Date: 20130708
  Transmission Date: 20140515
  Serious: No
  Sender: FDA-Public Use
  Company Number: US-B.I. PHARMACEUTICALS,INC./RIDGEFIELD-2013-BI-18779BP

PATIENT
  Age: 62 Year
  Sex: Female
  Weight: 81 kg

DRUGS (4)
  1. COMBIVENT [Suspect]
     Indication: CHRONIC OBSTRUCTIVE PULMONARY DISEASE
     Dosage: STRENGTH: 18 MCG / 103 MCG; DAILY DOSE: 216 MCG / 1236 MCG
     Route: 055
     Dates: start: 2003, end: 20130624
  2. COMBIVENT [Suspect]
     Indication: CHRONIC OBSTRUCTIVE PULMONARY DISEASE
     Dosage: STRENGTH: 20 MCG / 100 MCG; DAILY DOSE: 80 MCG / 400 MCG
     Route: 055
     Dates: start: 20130625, end: 20130625
  3. ACCOLATE [Concomitant]
     Indication: ASTHMA
     Dosage: 40 MG
     Route: 048
     Dates: start: 1980
  4. THEOPHYLLINE [Concomitant]
     Indication: CHRONIC OBSTRUCTIVE PULMONARY DISEASE
     Dosage: 900 MG
     Route: 048
     Dates: start: 2003

REACTIONS (5)
  - Prescribed overdose [Recovered/Resolved]
  - Cough [Recovered/Resolved]
  - Choking [Recovered/Resolved]
  - Dyspnoea [Recovered/Resolved]
  - Deafness [Not Recovered/Not Resolved]
